FAERS Safety Report 15843608 (Version 3)
Quarter: 2019Q2

REPORT INFORMATION
  Report Type: Spontaneous
  Country: JP (occurrence: JP)
  Receive Date: 20190118
  Receipt Date: 20190530
  Transmission Date: 20190711
  Serious: Yes (Hospitalization, Other)
  Sender: FDA-Public Use
  Company Number: JP-PFIZER INC-2018414818

PATIENT
  Age: 55 Year
  Sex: Male

DRUGS (9)
  1. BENEFIX [Suspect]
     Active Substance: COAGULATION FACTOR IX RECOMBINANT HUMAN\ISOPROPYL ALCOHOL
     Dosage: 2000 IU, SINGLE(ONCE)
     Route: 041
     Dates: start: 20181023, end: 20181023
  2. BENEFIX [Suspect]
     Active Substance: COAGULATION FACTOR IX RECOMBINANT HUMAN\ISOPROPYL ALCOHOL
     Dosage: 10000 IU (5000IU TWICE A DAY), SINGLE
     Route: 041
     Dates: start: 20181010, end: 20181010
  3. BENEFIX [Suspect]
     Active Substance: COAGULATION FACTOR IX RECOMBINANT HUMAN\ISOPROPYL ALCOHOL
     Dosage: 1000 IU, 1X/DAY
     Route: 041
     Dates: start: 20181020, end: 20181022
  4. BENEFIX [Suspect]
     Active Substance: COAGULATION FACTOR IX RECOMBINANT HUMAN\ISOPROPYL ALCOHOL
     Dosage: 3000 IU, SINGLE (ONCE A DAY)
     Route: 041
     Dates: start: 20181009, end: 20181009
  5. BENEFIX [Suspect]
     Active Substance: COAGULATION FACTOR IX RECOMBINANT HUMAN\ISOPROPYL ALCOHOL
     Dosage: 2000 IU, SINGLE (ONCE)
     Route: 041
     Dates: start: 20181019, end: 20181019
  6. BENEFIX [Suspect]
     Active Substance: COAGULATION FACTOR IX RECOMBINANT HUMAN\ISOPROPYL ALCOHOL
     Indication: HAEMORRHAGE
     Dosage: 1000 IU, DAILY
     Route: 041
  7. BENEFIX [Suspect]
     Active Substance: COAGULATION FACTOR IX RECOMBINANT HUMAN\ISOPROPYL ALCOHOL
     Dosage: 3000 IU, 1X/DAY
     Route: 041
     Dates: start: 20181011, end: 20181013
  8. BENEFIX [Suspect]
     Active Substance: COAGULATION FACTOR IX RECOMBINANT HUMAN\ISOPROPYL ALCOHOL
     Dosage: 2000 IU, 2X/DAY
     Route: 041
     Dates: start: 20181018, end: 20181018
  9. BENEFIX [Suspect]
     Active Substance: COAGULATION FACTOR IX RECOMBINANT HUMAN\ISOPROPYL ALCOHOL
     Dosage: 2000 IU, SINGLE (ONCE)
     Route: 041
     Dates: start: 20181016, end: 20181016

REACTIONS (4)
  - Intestinal polyp [Unknown]
  - Procedural haemorrhage [Unknown]
  - Melaena [Recovering/Resolving]
  - Condition aggravated [Unknown]

NARRATIVE: CASE EVENT DATE: 201808
